FAERS Safety Report 5958060-2 (Version None)
Quarter: 2008Q4

REPORT INFORMATION
  Report Type: 
  Country: None (occurrence: None)
  Receive Date: 20081119
  Receipt Date: 20081117
  Transmission Date: 20090506
  Serious: Yes (Other)
  Sender: FDA-Public Use
  Company Number: A0756805A

PATIENT
  Age: 19 Year
  Sex: Female

DRUGS (2)
  1. TREXIMET [Suspect]
     Indication: MIGRAINE
     Route: 048
     Dates: end: 20081106
  2. NO CONCURRENT MEDICATION [Concomitant]

REACTIONS (4)
  - ANAPHYLACTIC REACTION [None]
  - CONVULSION [None]
  - SYNCOPE [None]
  - THROAT TIGHTNESS [None]
